FAERS Safety Report 7375416-4 (Version None)
Quarter: 2011Q1

REPORT INFORMATION
  Report Type: 
  Country: None (occurrence: None)
  Receive Date: 20110325
  Receipt Date: 20110314
  Transmission Date: 20110831
  Serious: Yes (Hospitalization)
  Sender: FDA-Public Use
  Company Number: PHHY2010FR81588

PATIENT
  Sex: Male

DRUGS (3)
  1. CORTANCYL [Concomitant]
  2. COTAREG [Suspect]
     Indication: HYPERTENSION
     Dosage: 80 MG VALS AND 12.5 MG HYDR
     Route: 048
     Dates: end: 20101030
  3. BISOPROLOL FUMARATE [Suspect]
     Dosage: ONE TABLET DAILY
     Route: 048
     Dates: end: 20101030

REACTIONS (5)
  - THROMBOCYTOPENIA [None]
  - HAEMATOMA [None]
  - ASTHENIA [None]
  - MARROW HYPERPLASIA [None]
  - ANAEMIA [None]
